FAERS Safety Report 5503955-7 (Version None)
Quarter: 2007Q4

REPORT INFORMATION
  Report Type: 
  Country: None (occurrence: None)
  Receive Date: 20071030
  Receipt Date: 20071030
  Transmission Date: 20080405
  Serious: No
  Sender: FDA-Public Use
  Company Number: None

PATIENT
  Age: 75 Year
  Sex: Male
  Weight: 93.441 kg

DRUGS (6)
  1. ASPIRIN [Suspect]
     Indication: CEREBROVASCULAR ACCIDENT
     Dosage: 325MG   EVERY DAY  PO
     Route: 048
     Dates: start: 19970627
  2. ASPIRIN [Suspect]
     Indication: TRANSIENT ISCHAEMIC ATTACK
     Dosage: 325MG   EVERY DAY  PO
     Route: 048
     Dates: start: 19970627
  3. WARFARIN SODIUM [Suspect]
     Indication: ATRIAL FLUTTER
     Dosage: 20MG  QWEEK  PO
     Route: 048
     Dates: start: 20060707
  4. WARFARIN SODIUM [Suspect]
     Indication: CARDIAC FAILURE CONGESTIVE
     Dosage: 20MG  QWEEK  PO
     Route: 048
     Dates: start: 20060707
  5. WARFARIN SODIUM [Suspect]
     Indication: CEREBROVASCULAR ACCIDENT
     Dosage: 20MG  QWEEK  PO
     Route: 048
     Dates: start: 20060707
  6. WARFARIN SODIUM [Suspect]
     Indication: TRANSIENT ISCHAEMIC ATTACK
     Dosage: 20MG  QWEEK  PO
     Route: 048
     Dates: start: 20060707

REACTIONS (1)
  - ANAEMIA [None]
